FAERS Safety Report 10069987 (Version 1)
Quarter: 2014Q2

REPORT INFORMATION
  Report Type: Spontaneous
  Country: US (occurrence: None)
  Receive Date: 20140409
  Receipt Date: 20140409
  Transmission Date: 20141212
  Serious: Yes (Death, Life-Threatening, Hospitalization)
  Sender: FDA-Public Use
  Company Number: None

PATIENT
  Age: 70 Year
  Sex: Male
  Weight: 80 kg

DRUGS (1)
  1. ISOVUE 370 [Suspect]
     Indication: COMPUTERISED TOMOGRAM
     Dosage: ONCE BEFORE CT SCAN?

REACTIONS (8)
  - Renal failure acute [None]
  - Hypotension [None]
  - Dehydration [None]
  - Hypophagia [None]
  - Hyperkalaemia [None]
  - Cardiac arrest [None]
  - Refusal of treatment by patient [None]
  - Contrast media reaction [None]
